FAERS Safety Report 9258048 (Version 1)
Quarter: 2013Q2

REPORT INFORMATION
  Report Type: Spontaneous
  Country: US (occurrence: None)
  Receive Date: 20130424
  Receipt Date: 20130424
  Transmission Date: 20140414
  Serious: Yes (Other)
  Sender: FDA-Public Use
  Company Number: None

PATIENT
  Sex: Female
  Weight: 68.04 kg

DRUGS (1)
  1. MONTELUKAST [Suspect]
     Indication: ASTHMA
     Dosage: ONE DOSE DAILY PO
     Route: 048
     Dates: start: 2012

REACTIONS (6)
  - Chest discomfort [None]
  - Drug ineffective [None]
  - Bronchitis [None]
  - Wheezing [None]
  - Product substitution issue [None]
  - Therapeutic response unexpected with drug substitution [None]
